FAERS Safety Report 15788981 (Version 1)
Quarter: 2018Q4

REPORT INFORMATION
  Report Type: Spontaneous
  Country: US (occurrence: US)
  Receive Date: 20181228
  Receipt Date: 20181228
  Transmission Date: 20190205
  Serious: No
  Sender: FDA-Public Use
  Company Number: None

PATIENT
  Sex: Female

DRUGS (3)
  1. MARCAINE [Suspect]
     Active Substance: BUPIVACAINE HYDROCHLORIDE
  2. FENTANYL. [Suspect]
     Active Substance: FENTANYL
  3. PENICILLIN [Suspect]
     Active Substance: PENICILLIN

REACTIONS (12)
  - Toxicity to various agents [None]
  - Seizure [None]
  - Cardiac arrest [None]
  - Incorrect route of product administration [None]
  - Wrong product administered [None]
  - Apgar score low [None]
  - Maternal exposure during pregnancy [None]
  - Maternal drugs affecting foetus [None]
  - Caesarean section [None]
  - pH body fluid abnormal [None]
  - Product dispensing error [None]
  - Product label confusion [None]
